FAERS Safety Report 19489831 (Version 3)
Quarter: 2021Q3

REPORT INFORMATION
  Report Type: Report from Study
  Country: CA (occurrence: CA)
  Receive Date: 20210704
  Receipt Date: 20210914
  Transmission Date: 20211014
  Serious: Yes (Other)
  Sender: FDA-Public Use
  Company Number: CA-HLS-202107865

PATIENT
  Sex: Male

DRUGS (1)
  1. CLOZARIL [Suspect]
     Active Substance: CLOZAPINE
     Indication: PRODUCT USED FOR UNKNOWN INDICATION
     Dosage: THE PATIENT WAS JUST STARTED ON CLOZARIL YESTERDAY ONE DOSE 12.5MG . INCREASED DOSE 25MG, CURRENTLY
     Route: 048
     Dates: start: 20210628

REACTIONS (4)
  - Fatigue [Unknown]
  - Dizziness postural [Unknown]
  - Heart rate abnormal [Not Recovered/Not Resolved]
  - Sedation [Unknown]
